FAERS Safety Report 9167912 (Version 1)
Quarter: 2013Q1

REPORT INFORMATION
  Report Type: Spontaneous
  Country: US (occurrence: US)
  Receive Date: 20130318
  Receipt Date: 20130318
  Transmission Date: 20140127
  Serious: No
  Sender: FDA-Public Use
  Company Number: US-PFIZER INC-2013088032

PATIENT
  Age: 25 Year
  Sex: Female
  Weight: 45.35 kg

DRUGS (3)
  1. XELJANZ [Suspect]
     Indication: RHEUMATOID ARTHRITIS
     Dosage: 5 MG, 2X/DAY
     Route: 048
     Dates: start: 20130227
  2. ZOLOFT [Concomitant]
     Dosage: 25 MG, UNK
  3. KLONOPIN [Concomitant]
     Dosage: 1 MG, UNK

REACTIONS (1)
  - Oropharyngeal pain [Recovered/Resolved]
